FAERS Safety Report 9191898 (Version 1)
Quarter: 2013Q1

REPORT INFORMATION
  Report Type: Spontaneous
  Country: US (occurrence: US)
  Receive Date: 20130327
  Receipt Date: 20130327
  Transmission Date: 20140127
  Serious: No
  Sender: FDA-Public Use
  Company Number: US-BIOGENIDEC-2013BI026544

PATIENT
  Age: 58 Year
  Sex: Male

DRUGS (3)
  1. TYSABRI [Suspect]
     Indication: MULTIPLE SCLEROSIS
     Route: 042
     Dates: start: 20121108
  2. MAALOX [Concomitant]
     Route: 048
     Dates: start: 2010
  3. ANTIDEPRESSANT (NOS) [Concomitant]
     Indication: MOOD ALTERED

REACTIONS (2)
  - Dysuria [Unknown]
  - Urinary tract infection [Unknown]
